FAERS Safety Report 15582148 (Version 5)
Quarter: 2020Q3

REPORT INFORMATION
  Report Type: Other
  Country: CA (occurrence: CA)
  Receive Date: 20181105
  Receipt Date: 20200827
  Transmission Date: 20201102
  Serious: Yes (Other)
  Sender: FDA-Public Use
  Company Number: CA-ROCHE-2208996

PATIENT
  Sex: Male

DRUGS (1)
  1. OCREVUS [Suspect]
     Active Substance: OCRELIZUMAB
     Indication: SECONDARY PROGRESSIVE MULTIPLE SCLEROSIS
     Dosage: 300 MG AT DAY 0 AND 14, THEN 600 MG EVERY 6 MONTH
     Route: 042
     Dates: start: 20171209

REACTIONS (6)
  - Influenza [Unknown]
  - Hypotension [Unknown]
  - Skin infection [Unknown]
  - Staphylococcal skin infection [Recovered/Resolved]
  - Immunodeficiency [Unknown]
  - Progressive multiple sclerosis [Unknown]
